FAERS Safety Report 7883672-9 (Version None)
Quarter: 2011Q4

REPORT INFORMATION
  Report Type: 
  Country: None (occurrence: None)
  Receive Date: 20111102
  Receipt Date: 20111027
  Transmission Date: 20120403
  Serious: Yes (Hospitalization)
  Sender: FDA-Public Use
  Company Number: US-PFIZER INC-2011263743

PATIENT
  Age: 64 Year
  Sex: Male

DRUGS (2)
  1. REVATIO [Suspect]
     Dosage: UNK
  2. REMODULIN [Suspect]
     Indication: PULMONARY ARTERIAL HYPERTENSION
     Dosage: 172.8 UG/KG, (0.12 UG/KG, 1 IN 1 MIN)
     Route: 042
     Dates: start: 20060303

REACTIONS (1)
  - OXYGEN CONSUMPTION DECREASED [None]
